FAERS Safety Report 5602781-8 (Version None)
Quarter: 2008Q1

REPORT INFORMATION
  Report Type: 
  Country: None (occurrence: None)
  Receive Date: 20080125
  Receipt Date: 20080123
  Transmission Date: 20080703
  Serious: Yes (Other)
  Sender: FDA-Public Use
  Company Number: AU-SP-2007-04302

PATIENT
  Age: 3 Year
  Sex: Female

DRUGS (2)
  1. TUBERSOL [Suspect]
     Indication: TUBERCULIN TEST
     Route: 023
     Dates: start: 20071130
  2. TUBERSOL [Suspect]
     Route: 023
     Dates: start: 20071130

REACTIONS (2)
  - LIP SWELLING [None]
  - URTICARIA [None]
